FAERS Safety Report 10024170 (Version 1)
Quarter: 2014Q1

REPORT INFORMATION
  Report Type: Spontaneous
  Country: US (occurrence: None)
  Receive Date: 20140318
  Receipt Date: 20140318
  Transmission Date: 20141002
  Serious: Yes (Other)
  Sender: FDA-Public Use
  Company Number: None

PATIENT
  Age: 61 Year
  Sex: Female
  Weight: 102.06 kg

DRUGS (7)
  1. ABILIFY MAINTENA [Suspect]
     Indication: BIPOLAR DISORDER
     Route: 030
     Dates: start: 20130604, end: 20140311
  2. JANUVIA [Concomitant]
  3. FLUOXETINE [Concomitant]
  4. GLIMEPIRIDE [Concomitant]
  5. LORAZEPAM [Concomitant]
  6. VENLAFAXINE ER [Concomitant]
  7. METHYLPHENIDATE [Concomitant]

REACTIONS (1)
  - Injection site pain [None]
